FAERS Safety Report 7062223-5 (Version None)
Quarter: 2010Q4

REPORT INFORMATION
  Report Type: 
  Country: None (occurrence: None)
  Receive Date: 20101026
  Receipt Date: 20101021
  Transmission Date: 20110411
  Serious: Yes (Hospitalization)
  Sender: FDA-Public Use
  Company Number: US-ALLERGAN-1013589US

PATIENT
  Sex: Male

DRUGS (1)
  1. BOTOX [Suspect]
     Indication: PRODUCT USED FOR UNKNOWN INDICATION
     Dosage: 500 UNITS, SINGLE
     Route: 030
     Dates: start: 20100101, end: 20100101

REACTIONS (2)
  - DYSPHAGIA [None]
  - GASTROINTESTINAL DISORDER [None]
